FAERS Safety Report 18092469 (Version 9)
Quarter: 2025Q2

REPORT INFORMATION
  Report Type: Spontaneous
  Country: US (occurrence: US)
  Receive Date: 20200730
  Receipt Date: 20250422
  Transmission Date: 20250717
  Serious: Yes (Other)
  Sender: PFIZER
  Company Number: US-PFIZER INC-2020289421

PATIENT
  Age: 58 Year
  Sex: Female
  Weight: 87.23 kg

DRUGS (17)
  1. IBRANCE [Suspect]
     Active Substance: PALBOCICLIB
     Indication: Breast cancer metastatic
     Dosage: TAKE 1 TABLET (125MG) DAILY
     Route: 048
  2. IBRANCE [Suspect]
     Active Substance: PALBOCICLIB
     Route: 048
  3. METOPROLOL [Concomitant]
     Active Substance: METOPROLOL
  4. OMEPRAZOLE [Concomitant]
     Active Substance: OMEPRAZOLE
  5. FENOFIBRATE [Concomitant]
     Active Substance: FENOFIBRATE
  6. FOLIC ACID [Concomitant]
     Active Substance: FOLIC ACID
  7. ANASTROZOLE [Concomitant]
     Active Substance: ANASTROZOLE
  8. LEVOFENIL [Concomitant]
  9. METFORMIN HYDROCHLORIDE [Concomitant]
     Active Substance: METFORMIN HYDROCHLORIDE
  10. VITAMIN D3 [Concomitant]
     Active Substance: CHOLECALCIFEROL
  11. VITAMIN C [Concomitant]
     Active Substance: ASCORBIC ACID
  12. POTASSIUM [Concomitant]
     Active Substance: POTASSIUM
  13. MAGNESIUM [Concomitant]
     Active Substance: MAGNESIUM
  14. ZINC [Concomitant]
     Active Substance: ZINC
  15. CALCIUM [Concomitant]
     Active Substance: CALCIUM
  16. HERBALS\TURMERIC [Concomitant]
     Active Substance: HERBALS\TURMERIC
  17. ALLEGRA [Concomitant]
     Active Substance: FEXOFENADINE HYDROCHLORIDE

REACTIONS (9)
  - Dental operation [Unknown]
  - Surgery [Unknown]
  - Breast cancer metastatic [Unknown]
  - Recurrent cancer [Unknown]
  - Intentional product misuse [Unknown]
  - Influenza [Unknown]
  - Dehydration [Unknown]
  - Illness [Unknown]
  - Vomiting [Unknown]
